FAERS Safety Report 16628767 (Version 1)
Quarter: 2019Q3

REPORT INFORMATION
  Report Type: Spontaneous
  Country: US (occurrence: US)
  Receive Date: 20190725
  Receipt Date: 20190725
  Transmission Date: 20191004
  Serious: No
  Sender: FDA-Public Use
  Company Number: US-ELI_LILLY_AND_COMPANY-US201907006451

PATIENT
  Sex: Male

DRUGS (4)
  1. HUMALOG [Suspect]
     Active Substance: INSULIN LISPRO
     Indication: TYPE 1 DIABETES MELLITUS
     Dosage: UNK UNK, UNKNOWN (NORMAL DOSE AND A SLIDING SCALE OF 1 UNIT PER TEN CARBS THAT HE EATS)
     Route: 058
     Dates: start: 201901
  2. LANTUS [Concomitant]
     Active Substance: INSULIN GLARGINE
     Indication: TYPE 1 DIABETES MELLITUS
     Dosage: 26 U, DAILY (AT NIGHT)
     Route: 065
  3. HUMALOG [Suspect]
     Active Substance: INSULIN LISPRO
     Dosage: (NORMAL DOSE AND A SLIDING SCALE OF 1 UNIT PER TEN CARBS THAT HE EATS)UNK UNK, UNKNOWN
     Route: 058
  4. HUMALOG [Suspect]
     Active Substance: INSULIN LISPRO
     Indication: TYPE 1 DIABETES MELLITUS
     Dosage: UNK UNK, UNKNOWN (NORMAL DOSE AND A SLIDING SCALE OF 1 UNIT PER TEN CARBS THAT HE EATS)
     Route: 058

REACTIONS (3)
  - Blood glucose increased [Unknown]
  - Incorrect product administration duration [Unknown]
  - Incorrect dose administered [Unknown]
